FAERS Safety Report 4363005-5 (Version None)
Quarter: 2004Q2

REPORT INFORMATION
  Report Type: 
  Country: None (occurrence: None)
  Receive Date: 20040518
  Receipt Date: 20040505
  Transmission Date: 20050107
  Serious: Yes (Life-Threatening, Hospitalization)
  Sender: FDA-Public Use
  Company Number: FR-JNJFOC-20040500894

PATIENT
  Age: 85 Year
  Sex: Female

DRUGS (1)
  1. IMODIUM [Suspect]
     Dosage: 2 MG, 6 IN 1 DAY, ORAL
     Route: 048
     Dates: start: 20040404

REACTIONS (4)
  - HERNIA [None]
  - INTESTINAL OBSTRUCTION [None]
  - MEDICATION ERROR [None]
  - VOMITING [None]
